FAERS Safety Report 24526861 (Version 3)
Quarter: 2025Q1

REPORT INFORMATION
  Report Type: Report from Study
  Country: US (occurrence: US)
  Receive Date: 20241021
  Receipt Date: 20250101
  Transmission Date: 20250409
  Serious: Yes (Hospitalization)
  Sender: ROCHE
  Company Number: US-ROCHE-3533903

PATIENT
  Age: 70 Year
  Sex: Female

DRUGS (4)
  1. ZELBORAF [Suspect]
     Active Substance: VEMURAFENIB
     Indication: Thyroid cancer
     Route: 048
     Dates: start: 2018
  2. ZELBORAF [Suspect]
     Active Substance: VEMURAFENIB
     Route: 048
     Dates: start: 2018
  3. COTELLIC [Suspect]
     Active Substance: COBIMETINIB FUMARATE
     Indication: Thyroid cancer
     Dosage: TAKE 2 TABLET (40 MG) DAILY FOR 21 DAYS, THEN 7 DAYS OFF EVERY 28 DAY CYCLE.
     Route: 048
     Dates: start: 2018
  4. COTELLIC [Suspect]
     Active Substance: COBIMETINIB FUMARATE
     Dosage: TAKE 2 TABLET BY MOUTH DAILY FOR 21 DAYS, THEN 7 DAYS OFF
     Route: 048
     Dates: start: 2018

REACTIONS (3)
  - Off label use [Unknown]
  - Thrombosis [Unknown]
  - Neoplasm [Unknown]

NARRATIVE: CASE EVENT DATE: 20180101
